FAERS Safety Report 20141766 (Version 2)
Quarter: 2021Q4

REPORT INFORMATION
  Report Type: Spontaneous
  Country: US (occurrence: US)
  Receive Date: 20211202
  Receipt Date: 20211231
  Transmission Date: 20220303
  Serious: Yes (Death, Hospitalization, Other)
  Sender: FDA-Public Use
  Company Number: US-BoehringerIngelheim-2021-BI-141425

PATIENT
  Age: 66 Year
  Sex: Female

DRUGS (1)
  1. OFEV [Suspect]
     Active Substance: NINTEDANIB
     Indication: Product used for unknown indication
     Dosage: TAKE ONE CAPSULE BY MOUTH DAILY WITH BREAKFAST
     Route: 048
     Dates: start: 20210421, end: 20211101

REACTIONS (4)
  - Respiratory failure [Fatal]
  - Hypoxia [Unknown]
  - Nausea [Unknown]
  - Diarrhoea [Unknown]
